FAERS Safety Report 13169472 (Version 1)
Quarter: 2017Q1

REPORT INFORMATION
  Report Type: Spontaneous
  Country: CA (occurrence: CA)
  Receive Date: 20170201
  Receipt Date: 20170201
  Transmission Date: 20170428
  Serious: Yes (Other)
  Sender: FDA-Public Use
  Company Number: CA-OCTA-GAM32016CA

PATIENT
  Age: 33 Year
  Sex: Female

DRUGS (1)
  1. OCTAGAM IMMUNE GLOBULIN (HUMAN) [Suspect]
     Active Substance: HUMAN IMMUNOGLOBULIN G
     Indication: IMMUNE THROMBOCYTOPENIC PURPURA
     Route: 042
     Dates: start: 20160823, end: 20160824

REACTIONS (9)
  - Dyspnoea [Recovered/Resolved]
  - Nausea [Recovered/Resolved]
  - Maternal exposure during pregnancy [Unknown]
  - Vomiting [Recovered/Resolved]
  - Wheezing [Recovered/Resolved]
  - Chills [Recovered/Resolved]
  - Hypersensitivity [Recovered/Resolved]
  - Transfusion reaction [Recovered/Resolved]
  - Rales [Recovered/Resolved]

NARRATIVE: CASE EVENT DATE: 20160824
